FAERS Safety Report 7227164-9 (Version None)
Quarter: 2011Q1

REPORT INFORMATION
  Report Type: 
  Country: None (occurrence: None)
  Receive Date: 20110114
  Receipt Date: 20110107
  Transmission Date: 20110831
  Serious: Yes (Hospitalization)
  Sender: FDA-Public Use
  Company Number: US-ELI_LILLY_AND_COMPANY-US201101001916

PATIENT
  Sex: Male
  Weight: 80.5 kg

DRUGS (9)
  1. WELLBUTRIN [Concomitant]
     Indication: DEPRESSION
     Dates: start: 20000101
  2. ASCORBIC ACID [Concomitant]
     Indication: ROUTINE HEALTH MAINTENANCE
     Dates: start: 20000101
  3. CARBOPLATIN [Suspect]
     Indication: NON-SMALL CELL LUNG CANCER
     Dosage: 6 D/F, EVERY 21 DAYS
     Route: 042
     Dates: start: 20100820, end: 20101110
  4. FOLIC ACID [Concomitant]
     Indication: PREMEDICATION
     Dates: start: 19900101
  5. PROTONIX [Concomitant]
     Indication: GASTROOESOPHAGEAL REFLUX DISEASE
     Dates: start: 20050101
  6. PEMETREXED [Suspect]
     Indication: NON-SMALL CELL LUNG CANCER
     Dosage: 500 MG/M2, EVERY 21 DAYS
     Route: 042
     Dates: start: 20100820, end: 20101222
  7. TERAZOSIN HCL [Concomitant]
     Indication: HYPERTENSION
     Dates: start: 20050101
  8. VITAMIN B-12 [Concomitant]
     Indication: PREMEDICATION
     Dates: start: 20100813, end: 20101222
  9. RITALIN [Concomitant]
     Indication: ATTENTION DEFICIT/HYPERACTIVITY DISORDER
     Dates: start: 20000101

REACTIONS (1)
  - SMALL INTESTINAL OBSTRUCTION [None]
